FAERS Safety Report 4893993-X (Version None)
Quarter: 2006Q1

REPORT INFORMATION
  Report Type: 
  Country: None (occurrence: None)
  Receive Date: 20060127
  Receipt Date: 20050411
  Transmission Date: 20060701
  Serious: No
  Sender: FDA-Public Use
  Company Number: US-GLAXOSMITHKLINE-A0554260A

PATIENT
  Age: 12 Year
  Sex: Male

DRUGS (2)
  1. WELLBUTRIN [Suspect]
     Indication: ATTENTION DEFICIT/HYPERACTIVITY DISORDER
     Dosage: 150MG UNKNOWN
     Route: 048
     Dates: start: 20050114, end: 20050206
  2. NO CONCURRENT MEDICATIONS [Concomitant]

REACTIONS (1)
  - DRUG ERUPTION [None]
